FAERS Safety Report 8356817-4 (Version None)
Quarter: 2012Q1

REPORT INFORMATION
  Report Type: 
  Country: None (occurrence: None)
  Receive Date: 20120315
  Receipt Date: 20110228
  Transmission Date: 20120608
  Serious: Yes (Hospitalization, Other)
  Sender: FDA-Public Use
  Company Number: PHHY2010US84879

PATIENT
  Age: 58 Year
  Sex: Male

DRUGS (15)
  1. ATORVASTATIN [Concomitant]
  2. COPAXONE [Concomitant]
  3. DIAZEPAM [Concomitant]
  4. ZOLPIDEM [Concomitant]
  5. VARDENAFIL (VARDENAFIL) [Concomitant]
  6. TIZANIDINE HCL [Concomitant]
  7. CLOPIDEGREL [Concomitant]
  8. AMPYRA [Concomitant]
  9. FENOFIBRATE [Concomitant]
  10. SILDENAFIL CITRATE [Concomitant]
  11. GILENYA [Suspect]
     Indication: MULTIPLE SCLEROSIS
     Dosage: 0.5 MG, QD, ORAL
     Route: 048
     Dates: start: 20101206
  12. MODAFINIL [Concomitant]
  13. ATENOLOL [Concomitant]
  14. MULTIVITAMIN [Concomitant]
  15. ASPIRIN [Concomitant]

REACTIONS (8)
  - MACULAR OEDEMA [None]
  - VISUAL ACUITY REDUCED [None]
  - DIPLOPIA [None]
  - HYPERHIDROSIS [None]
  - MULTIPLE SCLEROSIS RELAPSE [None]
  - MUSCULAR WEAKNESS [None]
  - MALAISE [None]
  - VISION BLURRED [None]
